FAERS Safety Report 4622501-3 (Version None)
Quarter: 2005Q1

REPORT INFORMATION
  Report Type: 
  Country: None (occurrence: None)
  Receive Date: 20050330
  Receipt Date: 20040902
  Transmission Date: 20050727
  Serious: Yes (Other)
  Sender: FDA-Public Use
  Company Number: GB-ROCHE-379410

PATIENT

DRUGS (5)
  1. CELLCEPT [Suspect]
     Indication: LUPUS NEPHRITIS
  2. DOXAZOSIN [Concomitant]
  3. NIFEDIPINE LA [Concomitant]
  4. FOLIC ACID [Concomitant]
  5. RAMIPRIL [Concomitant]

REACTIONS (2)
  - DRUG EXPOSURE DURING PREGNANCY [None]
  - PREMATURE LABOUR [None]
